FAERS Safety Report 8204429-5 (Version None)
Quarter: 2012Q1

REPORT INFORMATION
  Report Type: 
  Country: None (occurrence: None)
  Receive Date: 20120313
  Receipt Date: 20120307
  Transmission Date: 20120608
  Serious: Yes (Death)
  Sender: FDA-Public Use
  Company Number: US-CELGENEUS-163-21880-11102032

PATIENT
  Sex: Female

DRUGS (30)
  1. DECADRON [Concomitant]
     Dosage: 40 MILLIGRAM
     Route: 048
  2. ERYTHROMYCIN [Concomitant]
     Dosage: 5 MILLIGRAM
     Route: 065
  3. ONDANSETRON HCL [Concomitant]
     Dosage: 8 MILLIGRAM
     Route: 048
  4. ZITHROMAX [Concomitant]
     Dosage: 250 MILLIGRAM
     Route: 048
  5. PRILOSEC [Concomitant]
     Dosage: 20 MILLIGRAM
     Route: 048
  6. ATIVAN [Concomitant]
     Indication: ANXIETY
     Dosage: 1 MILLIGRAM
     Route: 048
  7. FUROSEMIDE [Concomitant]
     Dosage: 20 MILLIGRAM
     Route: 048
  8. CALCIUM +D [Concomitant]
     Dosage: 500 MILLIGRAM
     Route: 048
  9. CYMBALTA [Concomitant]
     Dosage: 60 MILLIGRAM
     Route: 048
  10. LIDODERM [Concomitant]
     Dosage: 5 PERCENT
     Route: 065
  11. ACYCLOVIR [Concomitant]
     Dosage: 400 MILLIGRAM
     Route: 048
  12. HYDROCODONE BITARTRATE [Concomitant]
     Dosage: 2 TABLET
     Route: 048
  13. MORPHINE SULFATE [Concomitant]
     Route: 048
  14. OXYCODONE HCL [Concomitant]
     Dosage: 5 MILLIGRAM
     Route: 048
  15. MORPHINE [Concomitant]
     Dosage: 15 MILLIGRAM
     Route: 065
  16. EPH-DHA COMPLEX [Concomitant]
     Dosage: 2 PILLS
     Route: 048
  17. KLOR-CON M [Concomitant]
     Dosage: 20
     Route: 048
  18. AREDIA [Concomitant]
     Dosage: 90 MILLIGRAM
     Route: 041
  19. ASPIRIN [Concomitant]
     Dosage: 325 MILLIGRAM
     Route: 048
  20. LEVOTHYROXINE SODIUM [Concomitant]
     Dosage: 125 MICROGRAM
     Route: 048
  21. AMOXICILLIN [Concomitant]
     Dosage: 500 MILLIGRAM
     Route: 048
  22. PROCRIT [Concomitant]
     Route: 058
  23. ATIVAN [Concomitant]
     Indication: INSOMNIA
  24. MORPHINE [Concomitant]
     Dosage: 15 MILLIGRAM
     Route: 065
  25. PERIDEX [Concomitant]
     Dosage: 15 MILLILITER
     Route: 048
  26. PREDNISONE [Concomitant]
     Dosage: 10 MILLIGRAM
     Route: 048
  27. BROMELAIN [Concomitant]
     Dosage: 1 PILL
     Route: 048
  28. CEPHALEXIN [Concomitant]
     Dosage: 500 MILLIGRAM
     Route: 048
  29. REVLIMID [Suspect]
     Indication: MULTIPLE MYELOMA
     Dosage: 25 MILLIGRAM
     Route: 048
     Dates: start: 20100622, end: 20110901
  30. AUGMENTIN '125' [Concomitant]
     Dosage: 875-125MG
     Route: 048

REACTIONS (4)
  - MULTI-ORGAN FAILURE [None]
  - PNEUMONIA [None]
  - SEPSIS [None]
  - CELLULITIS [None]
